FAERS Safety Report 9338697 (Version 1)
Quarter: 2013Q2

REPORT INFORMATION
  Report Type: Spontaneous
  Country: US (occurrence: US)
  Receive Date: 20130610
  Receipt Date: 20130610
  Transmission Date: 20140414
  Serious: Yes (Hospitalization)
  Sender: FDA-Public Use
  Company Number: US-PFIZER INC-2013171165

PATIENT
  Age: 54 Year
  Sex: Female

DRUGS (2)
  1. ARGATROBAN [Suspect]
     Indication: HEPARIN-INDUCED THROMBOCYTOPENIA
     Dosage: 0.141 MCG/KG/MIN
     Route: 042
     Dates: start: 20130528
  2. WARFARIN [Suspect]

REACTIONS (1)
  - Activated partial thromboplastin time abnormal [Not Recovered/Not Resolved]
